FAERS Safety Report 18138417 (Version 1)
Quarter: 2020Q3

REPORT INFORMATION
  Report Type: Spontaneous
  Country: US (occurrence: US)
  Receive Date: 20200811
  Receipt Date: 20200811
  Transmission Date: 20201103
  Serious: Yes (Hospitalization)
  Sender: FDA-Public Use
  Company Number: None

PATIENT
  Age: 68 Year
  Sex: Male
  Weight: 105 kg

DRUGS (1)
  1. CLONIDINE (CLONIDINE HCL 0.2MG TAB) [Suspect]
     Active Substance: CLONIDINE HYDROCHLORIDE
     Indication: HYPERTENSION
     Route: 048
     Dates: start: 20200425, end: 20200425

REACTIONS (6)
  - Confusional state [None]
  - Lethargy [None]
  - Sedation [None]
  - Hypotension [None]
  - Dyspnoea [None]
  - Bradycardia [None]

NARRATIVE: CASE EVENT DATE: 20200425
